FAERS Safety Report 4702387-9 (Version None)
Quarter: 2005Q2

REPORT INFORMATION
  Report Type: 
  Country: None (occurrence: None)
  Receive Date: 20050629
  Receipt Date: 20011120
  Transmission Date: 20051028
  Serious: Yes (Death, Hospitalization, Disabling)
  Sender: FDA-Public Use
  Company Number: US-GLAXOSMITHKLINE-A0355623B

PATIENT
  Age: 40 Year
  Sex: Female
  Weight: 45.9 kg

DRUGS (15)
  1. ORNADE [Suspect]
     Route: 048
     Dates: start: 19741210
  2. CORICIDIN [Suspect]
  3. ALKA-SELTZER PLUS [Suspect]
  4. TRAZODONE [Concomitant]
     Route: 048
  5. ZOLOFT [Concomitant]
     Route: 048
  6. PREDNISONE [Concomitant]
     Route: 048
     Dates: start: 19960301
  7. ENTEX LA [Concomitant]
  8. BACTRIM [Concomitant]
     Dates: start: 19960301, end: 19960311
  9. PROVENTIL [Concomitant]
  10. ESTROGEN PATCH [Concomitant]
     Route: 061
  11. TUSSIONEX [Concomitant]
     Route: 048
  12. ATIVAN [Concomitant]
  13. SINE-OFF [Concomitant]
     Route: 048
     Dates: start: 19960301
  14. CONTAC 12-HOUR COLD CAPSULE [Concomitant]
     Route: 048
  15. CONTAC 12-HOUR COLD CAPSULE [Concomitant]
     Route: 048
     Dates: start: 19960301

REACTIONS (75)
  - ABASIA [None]
  - ACALCULIA [None]
  - ACTIVITIES OF DAILY LIVING IMPAIRED [None]
  - AMNESIA [None]
  - ANHEDONIA [None]
  - ANXIETY [None]
  - APHASIA [None]
  - ARTHRALGIA [None]
  - ASTHENIA [None]
  - BLOOD PRESSURE INCREASED [None]
  - CEREBRAL HAEMORRHAGE [None]
  - CEREBRAL ISCHAEMIA [None]
  - COGNITIVE DISORDER [None]
  - CONFUSIONAL STATE [None]
  - CONVULSION [None]
  - COORDINATION ABNORMAL [None]
  - COUGH [None]
  - DIFFICULTY IN WALKING [None]
  - DISORIENTATION [None]
  - DISSOCIATION [None]
  - DISTURBANCE IN ATTENTION [None]
  - DIZZINESS [None]
  - DRUG TOXICITY [None]
  - DYSARTHRIA [None]
  - DYSKINESIA [None]
  - DYSPHORIA [None]
  - DYSPNOEA [None]
  - ECONOMIC PROBLEM [None]
  - EXPOSURE TO COMMUNICABLE DISEASE [None]
  - EYELID PTOSIS [None]
  - FATIGUE [None]
  - GLIOSIS [None]
  - HAEMORRHAGIC CEREBRAL INFARCTION [None]
  - HEADACHE [None]
  - HEARING IMPAIRED [None]
  - HEMIPARESIS [None]
  - HYPERSOMNIA [None]
  - HYPOAESTHESIA [None]
  - ILL-DEFINED DISORDER [None]
  - INSOMNIA [None]
  - IRRITABILITY [None]
  - LACRIMATION INCREASED [None]
  - LOSS OF CONSCIOUSNESS [None]
  - LOSS OF CONTROL OF LEGS [None]
  - MAJOR DEPRESSION [None]
  - MEMORY IMPAIRMENT [None]
  - MENTAL IMPAIRMENT [None]
  - MIGRAINE [None]
  - MUSCLE SPASMS [None]
  - MUSCULAR WEAKNESS [None]
  - MUSCULOSKELETAL STIFFNESS [None]
  - MYALGIA [None]
  - NAUSEA [None]
  - NECK PAIN [None]
  - NERVOUS SYSTEM DISORDER [None]
  - PAIN [None]
  - PAIN IN EXTREMITY [None]
  - PAIN IN JAW [None]
  - PARAESTHESIA [None]
  - PHARYNGEAL ERYTHEMA [None]
  - RESPIRATORY DISORDER [None]
  - SENSATION OF HEAVINESS [None]
  - SENSATION OF PRESSURE [None]
  - SHOULDER PAIN [None]
  - SNORING [None]
  - SPEECH DISORDER [None]
  - SPUTUM DISCOLOURED [None]
  - TENSION [None]
  - TINNITUS [None]
  - TYMPANIC MEMBRANE HYPERAEMIA [None]
  - VERTIGO [None]
  - VISION BLURRED [None]
  - VISUAL FIELD DEFECT [None]
  - VOMITING [None]
  - WHITE BLOOD CELL COUNT INCREASED [None]
